FAERS Safety Report 19425779 (Version 1)
Quarter: 2021Q2

REPORT INFORMATION
  Report Type: Spontaneous
  Country: FR (occurrence: FR)
  Receive Date: 20210616
  Receipt Date: 20210616
  Transmission Date: 20210717
  Serious: Yes (Other)
  Sender: FDA-Public Use
  Company Number: NVSC2021FR130166

PATIENT
  Age: 92 Year
  Sex: Female

DRUGS (2)
  1. ENTRESTO [Suspect]
     Active Substance: SACUBITRIL\VALSARTAN
     Indication: CARDIAC FAILURE
     Dosage: 1 DF, BID, (24/26 MG, MORNING AND EVENING)
     Route: 065
  2. ENTRESTO [Suspect]
     Active Substance: SACUBITRIL\VALSARTAN
     Dosage: 2 DF, BID (24/26 MG, MORNING AND EVENING)
     Route: 065

REACTIONS (1)
  - Ophthalmic herpes zoster [Unknown]
